FAERS Safety Report 22110997 (Version 1)
Quarter: 2023Q1

REPORT INFORMATION
  Report Type: Report from Study
  Country: CO (occurrence: CO)
  Receive Date: 20230317
  Receipt Date: 20230317
  Transmission Date: 20230417
  Serious: Yes (Other)
  Sender: FDA-Public Use
  Company Number: CO-002147023-NVSC2022CO277477

PATIENT
  Sex: Female

DRUGS (1)
  1. BROLUCIZUMAB [Suspect]
     Active Substance: BROLUCIZUMAB
     Indication: Age-related macular degeneration
     Dosage: UNK, QMO (OPHTHALMIC/ IN THE EYE)
     Route: 047

REACTIONS (4)
  - Choroidal effusion [Unknown]
  - Vision blurred [Recovering/Resolving]
  - Ocular hyperaemia [Unknown]
  - Photopsia [Not Recovered/Not Resolved]
